FAERS Safety Report 6494381-5 (Version None)
Quarter: 2009Q4

REPORT INFORMATION
  Report Type: 
  Country: None (occurrence: None)
  Receive Date: 20091214
  Receipt Date: 20090210
  Transmission Date: 20100525
  Serious: Yes (Other)
  Sender: FDA-Public Use
  Company Number: US-BRISTOL-MYERS SQUIBB COMPANY-14504435

PATIENT

DRUGS (2)
  1. ABILIFY [Suspect]
  2. WELLBUTRIN [Suspect]

REACTIONS (2)
  - BLOOD SODIUM DECREASED [None]
  - CONVULSION [None]
